FAERS Safety Report 17915288 (Version 2)
Quarter: 2020Q2

REPORT INFORMATION
  Report Type: Report from Study
  Country: US (occurrence: US)
  Receive Date: 20200619
  Receipt Date: 20200622
  Transmission Date: 20200714
  Serious: No
  Sender: FDA-Public Use
  Company Number: NVSC2020US170598

PATIENT
  Sex: Female

DRUGS (2)
  1. MAYZENT [Suspect]
     Active Substance: SIPONIMOD
     Indication: MULTIPLE SCLEROSIS
     Dosage: 0.25 MG, OTHER,BEFORE STARTING MAINTENANCE DOSE
     Route: 048
     Dates: start: 202005
  2. MAYZENT [Suspect]
     Active Substance: SIPONIMOD
     Dosage: 2 MG, QD, TAKE AFTER COMPLETING START PACK
     Route: 048
     Dates: start: 202005

REACTIONS (3)
  - Cough [Unknown]
  - Wheezing [Unknown]
  - Dyspnoea [Unknown]
